FAERS Safety Report 16077303 (Version 4)
Quarter: 2019Q2

REPORT INFORMATION
  Report Type: Spontaneous
  Country: US (occurrence: US)
  Receive Date: 20190315
  Receipt Date: 20190530
  Transmission Date: 20190711
  Serious: No
  Sender: FDA-Public Use
  Company Number: US-GLAXOSMITHKLINE-US2019042387

PATIENT
  Sex: Male

DRUGS (4)
  1. IMITREX [Suspect]
     Active Substance: SUMATRIPTAN SUCCINATE
     Dosage: UNK
  2. PERCOCET [Concomitant]
     Active Substance: ACETAMINOPHEN\OXYCODONE HYDROCHLORIDE
     Dosage: 2 DF, 1D
  3. IMITREX [Suspect]
     Active Substance: SUMATRIPTAN SUCCINATE
     Indication: CLUSTER HEADACHE
     Dosage: 6 MG, UNK
     Route: 058
     Dates: start: 2012
  4. IMITREX [Suspect]
     Active Substance: SUMATRIPTAN SUCCINATE
     Indication: MIGRAINE
     Dosage: 50 MG, UNK
     Route: 048

REACTIONS (8)
  - Dysphagia [Unknown]
  - Drug ineffective [Unknown]
  - Injection site indentation [Unknown]
  - Intentional product misuse [Unknown]
  - Expired product administered [Unknown]
  - Underdose [Unknown]
  - Product packaging confusion [Unknown]
  - Product complaint [Unknown]
